FAERS Safety Report 11145391 (Version 1)
Quarter: 2015Q2

REPORT INFORMATION
  Report Type: Spontaneous
  Country: FR (occurrence: FR)
  Receive Date: 20150528
  Receipt Date: 20150528
  Transmission Date: 20150821
  Serious: Yes (Hospitalization)
  Sender: FDA-Public Use
  Company Number: FR-009507513-1505FRA011344

PATIENT
  Age: 43 Year
  Sex: Female

DRUGS (2)
  1. ALENDRONATE SODIUM. [Concomitant]
     Active Substance: ALENDRONATE SODIUM
     Dosage: UNK
     Route: 048
  2. GRAZAX [Suspect]
     Active Substance: PHLEUM PRATENSE POLLEN
     Indication: CONJUNCTIVITIS
     Dosage: 75000 SQ-T (DF), DAILY
     Route: 060
     Dates: start: 20110311, end: 20110606

REACTIONS (4)
  - Wheezing [Recovered/Resolved]
  - Laryngeal dyspnoea [Recovered/Resolved]
  - Asthma [Recovered/Resolved]
  - Cough [Recovered/Resolved]

NARRATIVE: CASE EVENT DATE: 20110418
